FAERS Safety Report 8010300-4 (Version None)
Quarter: 2011Q4

REPORT INFORMATION
  Report Type: 
  Country: None (occurrence: None)
  Receive Date: 20111228
  Receipt Date: 20111216
  Transmission Date: 20120403
  Serious: Yes (Death)
  Sender: FDA-Public Use
  Company Number: US-PFIZER INC-2011309859

PATIENT
  Age: 65 Year
  Sex: Male

DRUGS (5)
  1. ATORVASTATIN CALCIUM [Suspect]
     Route: 048
  2. AMLODIPINE BESYLATE [Suspect]
     Route: 048
  3. ATENOLOL [Suspect]
     Route: 048
  4. PAROXETINE [Suspect]
     Route: 048
  5. LISINOPRIL [Suspect]
     Route: 048

REACTIONS (1)
  - COMPLETED SUICIDE [None]
